FAERS Safety Report 12297094 (Version 1)
Quarter: 2016Q2

REPORT INFORMATION
  Report Type: Spontaneous
  Country: US (occurrence: US)
  Receive Date: 20160422
  Receipt Date: 20160422
  Transmission Date: 20160815
  Serious: No
  Sender: FDA-Public Use
  Company Number: US-GLAXOSMITHKLINE-US2016053924

PATIENT
  Age: 69 Year
  Sex: Female

DRUGS (7)
  1. TANZEUM [Suspect]
     Active Substance: ALBIGLUTIDE
     Indication: DIABETES MELLITUS
     Dosage: 30 MG, WE
     Route: 042
     Dates: start: 20160411
  2. RANITIDINE. [Concomitant]
     Active Substance: RANITIDINE
  3. MIRAPEX [Concomitant]
     Active Substance: PRAMIPEXOLE DIHYDROCHLORIDE
  4. NORVASC [Concomitant]
     Active Substance: AMLODIPINE BESYLATE
  5. MICARDIS HCT [Concomitant]
     Active Substance: HYDROCHLOROTHIAZIDE\TELMISARTAN
  6. METFORMIN [Concomitant]
     Active Substance: METFORMIN HYDROCHLORIDE
  7. PROTONIX (PANTOPRAZOLE SODIUM) [Concomitant]

REACTIONS (4)
  - Paraesthesia [Unknown]
  - Chest discomfort [Unknown]
  - Hypoaesthesia [Unknown]
  - Flat affect [Unknown]

NARRATIVE: CASE EVENT DATE: 20160416
